FAERS Safety Report 8263128-4 (Version None)
Quarter: 2012Q2

REPORT INFORMATION
  Report Type: 
  Country: None (occurrence: None)
  Receive Date: 20120405
  Receipt Date: 20120323
  Transmission Date: 20120825
  Serious: Yes (Hospitalization, Other)
  Sender: FDA-Public Use
  Company Number: DE-ELI_LILLY_AND_COMPANY-DE201203007194

PATIENT
  Age: 45 Year
  Sex: Female
  Weight: 60 kg

DRUGS (3)
  1. PIPAMPERON [Concomitant]
  2. DOMINAL FORTE [Concomitant]
  3. CYMBALTA [Suspect]
     Route: 048

REACTIONS (8)
  - SUICIDE ATTEMPT [None]
  - MULTIPLE DRUG OVERDOSE INTENTIONAL [None]
  - SOMNOLENCE [None]
  - ELECTROCARDIOGRAM QT PROLONGED [None]
  - PARAESTHESIA [None]
  - BLOOD CREATININE INCREASED [None]
  - URINARY RETENTION [None]
  - BLOOD POTASSIUM DECREASED [None]
